FAERS Safety Report 7636316-5 (Version None)
Quarter: 2011Q3

REPORT INFORMATION
  Report Type: 
  Country: None (occurrence: None)
  Receive Date: 20110722
  Receipt Date: 20110722
  Transmission Date: 20111222
  Serious: No
  Sender: FDA-Public Use
  Company Number: None

PATIENT
  Sex: Female

DRUGS (2)
  1. ABILIFY [Concomitant]
  2. VENLAFAXINE [Suspect]
     Dosage: 75 MG 2 QD ORAL HAS BEEN ON AT LEAST 3 YRS
     Route: 048

REACTIONS (3)
  - PRODUCT SUBSTITUTION ISSUE [None]
  - UNEVALUABLE EVENT [None]
  - DRUG INEFFECTIVE [None]
